FAERS Safety Report 11219247 (Version 1)
Quarter: 2015Q2

REPORT INFORMATION
  Report Type: Report from Study
  Country: DE (occurrence: DE)
  Receive Date: 20150625
  Receipt Date: 20150625
  Transmission Date: 20150821
  Serious: Yes (Death)
  Sender: FDA-Public Use
  Company Number: DE-ABBVIE-15P-062-1413555-00

PATIENT
  Age: 75 Year
  Sex: Female

DRUGS (1)
  1. DUODOPA [Suspect]
     Active Substance: CARBIDOPA\LEVODOPA
     Indication: PARKINSON^S DISEASE
     Dosage: MD 7ML, CRD 2.3ML/H, CRN 1.6ML/H, ED 2.4ML
     Route: 050
     Dates: start: 20090120

REACTIONS (2)
  - General physical health deterioration [Fatal]
  - Syncope [Fatal]

NARRATIVE: CASE EVENT DATE: 20150619
